FAERS Safety Report 9839671 (Version 2)
Quarter: 2014Q1

REPORT INFORMATION
  Report Type: Spontaneous
  Country: US (occurrence: US)
  Receive Date: 20140124
  Receipt Date: 20140124
  Transmission Date: 20141002
  Serious: Yes (Hospitalization)
  Sender: FDA-Public Use
  Company Number: US-BIOGENIDEC-2014BI005440

PATIENT
  Age: 66 Year
  Sex: Female

DRUGS (16)
  1. TECFIDERA [Suspect]
     Indication: MULTIPLE SCLEROSIS
     Route: 048
     Dates: start: 20130617
  2. ALBUTEROL SULFATE [Concomitant]
  3. BENICAR HCT [Concomitant]
  4. BIOTIN 5000 [Concomitant]
  5. CHONDROITIN SULFATE [Concomitant]
  6. CLONAZEPAM [Concomitant]
  7. CYMBALTA [Concomitant]
  8. GABAPENTIN [Concomitant]
  9. GLUCOSAMINE CHONDROIT-COLLAGEN [Concomitant]
  10. LUTEIN [Concomitant]
  11. MECLIZINE HCL [Concomitant]
  12. MELOXICAM [Concomitant]
  13. PREMPRO [Concomitant]
  14. PROVIGIL [Concomitant]
  15. VESICARE [Concomitant]
  16. VITAMIN D (ERGOCALCIFEROL) [Concomitant]

REACTIONS (2)
  - Pelvic fracture [Unknown]
  - Fall [Unknown]
